FAERS Safety Report 9696245 (Version 1)
Quarter: 2013Q4

REPORT INFORMATION
  Report Type: Spontaneous
  Country: JP (occurrence: JP)
  Receive Date: 20131119
  Receipt Date: 20131119
  Transmission Date: 20140711
  Serious: Yes (Other)
  Sender: FDA-Public Use
  Company Number: JP-BRISTOL-MYERS SQUIBB COMPANY-19822782

PATIENT
  Age: 38 Year
  Sex: Male

DRUGS (2)
  1. METGLUCO [Suspect]
     Indication: DIABETES MELLITUS
     Dosage: 1 DF: 48 TABS;?STARTED ON 1500 MG/D
     Route: 048
     Dates: start: 20131006, end: 20131006
  2. EUGLUCON [Concomitant]
     Route: 048

REACTIONS (3)
  - Renal disorder [Recovering/Resolving]
  - Vomiting [Unknown]
  - Intentional overdose [Unknown]
